FAERS Safety Report 9454991 (Version 2)
Quarter: 2013Q3

REPORT INFORMATION
  Report Type: Spontaneous
  Country: US (occurrence: US)
  Receive Date: 20130813
  Receipt Date: 20130927
  Transmission Date: 20140515
  Serious: No
  Sender: FDA-Public Use
  Company Number: US-BIOGENIDEC-2013BI074287

PATIENT
  Age: 57 Year
  Sex: Female

DRUGS (1)
  1. TYSABRI [Suspect]
     Indication: MULTIPLE SCLEROSIS
     Route: 042
     Dates: start: 20130710

REACTIONS (5)
  - Heart rate decreased [Recovered/Resolved]
  - Fatigue [Unknown]
  - Alopecia [Not Recovered/Not Resolved]
  - Lethargy [Not Recovered/Not Resolved]
  - Hypotension [Recovered/Resolved]
